FAERS Safety Report 5709436-X (Version None)
Quarter: 2008Q2

REPORT INFORMATION
  Report Type: 
  Country: None (occurrence: None)
  Receive Date: 20080418
  Receipt Date: 20080408
  Transmission Date: 20081010
  Serious: Yes (Hospitalization, Other)
  Sender: FDA-Public Use
  Company Number: US-JNJFOC-20080103220

PATIENT
  Sex: Male

DRUGS (63)
  1. DURAGESIC-100 [Suspect]
     Route: 062
  2. DURAGESIC-100 [Suspect]
     Route: 062
  3. DURAGESIC-100 [Suspect]
     Route: 062
  4. DURAGESIC-100 [Suspect]
     Route: 062
  5. DURAGESIC-100 [Suspect]
     Route: 062
  6. DURAGESIC-100 [Suspect]
     Indication: POST LAMINECTOMY SYNDROME
     Route: 062
  7. ACTIQ [Suspect]
     Route: 002
  8. ACTIQ [Suspect]
     Route: 002
  9. ACTIQ [Suspect]
     Route: 002
  10. ACTIQ [Suspect]
     Route: 002
  11. ACTIQ [Suspect]
     Route: 002
  12. ACTIQ [Suspect]
     Dosage: MAXIMUM OF 5 PER DAY
     Route: 002
  13. ACTIQ [Suspect]
     Dosage: AS DIRECTED
     Route: 002
  14. ACTIQ [Suspect]
     Dosage: AS DIRECTED
     Route: 002
  15. ACTIQ [Suspect]
     Dosage: AS DIRECTED
     Route: 002
  16. ACTIQ [Suspect]
     Dosage: AS DIRECTED
     Route: 002
  17. ACTIQ [Suspect]
     Route: 002
  18. ACTIQ [Suspect]
     Route: 002
  19. ACTIQ [Suspect]
     Route: 002
  20. ACTIQ [Suspect]
     Dosage: OCCASIONAL
     Route: 002
  21. ACTIQ [Suspect]
     Route: 002
  22. ACTIQ [Suspect]
     Dosage: Q 6 HOURS
     Route: 002
  23. ACTIQ [Suspect]
     Dosage: Q6-8 HOURS
     Route: 002
  24. ACTIQ [Suspect]
     Dosage: Q6-8 HOURS
     Route: 002
  25. ACTIQ [Suspect]
     Indication: POST LAMINECTOMY SYNDROME
     Dosage: SPARINGLY
     Route: 002
  26. DILAUDID [Suspect]
     Route: 048
  27. DILAUDID [Suspect]
     Indication: POST LAMINECTOMY SYNDROME
     Route: 048
  28. VALIUM [Suspect]
     Route: 065
  29. VALIUM [Suspect]
     Indication: DRUG USE FOR UNKNOWN INDICATION
     Route: 065
  30. ARAVA [Concomitant]
     Route: 065
  31. LEXAPRO [Concomitant]
     Route: 065
  32. ALLEGRA [Concomitant]
     Route: 065
  33. LIPITOR [Concomitant]
     Route: 065
  34. NEXIUM [Concomitant]
     Route: 065
  35. ATENOLOL [Concomitant]
     Route: 065
  36. FOSAMAX [Concomitant]
     Route: 065
  37. FENTORA [Concomitant]
     Route: 065
  38. ZELNORM [Concomitant]
     Route: 065
  39. LIDODERM [Concomitant]
     Route: 065
  40. ZOLOFT [Concomitant]
     Route: 065
  41. NEURONTIN [Concomitant]
     Route: 065
  42. TOPAMAX [Concomitant]
     Route: 065
  43. NORCO [Concomitant]
     Route: 065
  44. KEPPRA [Concomitant]
     Route: 065
  45. KEPPRA [Concomitant]
     Route: 065
  46. CELEBREX [Concomitant]
     Route: 065
  47. BEXTRA [Concomitant]
     Route: 065
  48. VIOXX [Concomitant]
     Route: 065
  49. CELEXA [Concomitant]
     Route: 065
  50. LORAZEPAM [Concomitant]
     Route: 065
  51. HYDROCODONE BITARTRATE [Concomitant]
     Route: 065
  52. SCOPOLAMINE [Concomitant]
     Route: 065
  53. CLONIDINE HCL [Concomitant]
     Route: 065
  54. GABITRIL [Concomitant]
     Route: 065
  55. PROVIGIL [Concomitant]
     Route: 065
  56. AVINZA [Concomitant]
     Route: 065
  57. AMBIEN [Concomitant]
     Route: 065
  58. FLOMAX [Concomitant]
     Route: 065
  59. MOBIC [Concomitant]
     Route: 065
  60. RESTORIL [Concomitant]
     Route: 065
  61. PLAQUENIL [Concomitant]
     Route: 065
  62. METHYLPREDNISOLONE [Concomitant]
     Route: 065
  63. LUNESTA [Concomitant]
     Route: 065

REACTIONS (18)
  - ANGER [None]
  - ANXIETY [None]
  - DENTAL CARIES [None]
  - DRUG DEPENDENCE [None]
  - DRUG WITHDRAWAL SYNDROME [None]
  - EUPHORIC MOOD [None]
  - EXERCISE TOLERANCE DECREASED [None]
  - HYPERHIDROSIS [None]
  - INTENTIONAL DRUG MISUSE [None]
  - LOSS OF CONSCIOUSNESS [None]
  - MEMORY IMPAIRMENT [None]
  - MUSCLE SPASMS [None]
  - NAUSEA [None]
  - PARANOIA [None]
  - PERSONALITY CHANGE [None]
  - SEDATION [None]
  - SUICIDAL IDEATION [None]
  - TREMOR [None]
